FAERS Safety Report 9188958 (Version 1)
Quarter: 2013Q1

REPORT INFORMATION
  Report Type: Spontaneous
  Country: DE (occurrence: DE)
  Receive Date: 20130326
  Receipt Date: 20130326
  Transmission Date: 20140127
  Serious: Yes (Hospitalization)
  Sender: FDA-Public Use
  Company Number: DE-BIOGENIDEC-2013BI026386

PATIENT
  Age: 37 Year
  Sex: Female
  Weight: 78 kg

DRUGS (1)
  1. AVONEX [Suspect]
     Indication: MULTIPLE SCLEROSIS
     Route: 030
     Dates: start: 20110901

REACTIONS (4)
  - Visual acuity reduced [Recovered/Resolved with Sequelae]
  - Fall [Recovered/Resolved]
  - Bone contusion [Recovered/Resolved with Sequelae]
  - Muscular weakness [Recovered/Resolved]
